FAERS Safety Report 6430429-1 (Version None)
Quarter: 2009Q4

REPORT INFORMATION
  Report Type: 
  Country: None (occurrence: None)
  Receive Date: 20091106
  Receipt Date: 20091102
  Transmission Date: 20100525
  Serious: Yes (Life-Threatening, Other)
  Sender: FDA-Public Use
  Company Number: PHHY2009RS47706

PATIENT
  Age: 75 Year
  Sex: Female

DRUGS (2)
  1. EXELON [Suspect]
     Indication: COGNITIVE DISORDER
     Dosage: 1.5 MG TWICE DAILY (2X 1.5 MG )
     Dates: start: 20060101
  2. EXELON [Suspect]
     Dosage: 6 MG TWICE DAILY (2X 6 MG)
     Dates: start: 20070101

REACTIONS (3)
  - ARRHYTHMIA [None]
  - INCORRECT DOSE ADMINISTERED [None]
  - MEDICATION ERROR [None]
